FAERS Safety Report 12693101 (Version 2)
Quarter: 2016Q4

REPORT INFORMATION
  Report Type: Report from Study
  Country: US (occurrence: US)
  Receive Date: 20160829
  Receipt Date: 20161003
  Transmission Date: 20170207
  Serious: Yes (Death, Hospitalization, Other)
  Sender: FDA-Public Use
  Company Number: US-BRISTOL-MYERS SQUIBB COMPANY-BMS-2016-031799

PATIENT
  Age: 41 Year
  Sex: Male
  Weight: 52.15 kg

DRUGS (6)
  1. VARLILUMAB [Suspect]
     Active Substance: VARLILUMAB
     Indication: COLON CANCER
     Dosage: 10 MG/KG, Q2WK
     Route: 042
     Dates: start: 20160209
  2. TYLOX [Concomitant]
     Active Substance: ACETAMINOPHEN\OXYCODONE HYDROCHLORIDE
     Indication: PAIN
     Dosage: 325 MG, PRN
     Route: 048
     Dates: start: 20160130
  3. BISACODYL. [Concomitant]
     Active Substance: BISACODYL
     Indication: LAXATIVE SUPPORTIVE CARE
     Dosage: 5 MG, QD
     Route: 048
     Dates: start: 20160405
  4. NIVOLUMAB [Suspect]
     Active Substance: NIVOLUMAB
     Indication: COLON CANCER
     Dosage: 3 MG/KG, Q2WK
     Route: 065
     Dates: start: 20160209
  5. EFFEXOR [Concomitant]
     Active Substance: VENLAFAXINE HYDROCHLORIDE
     Indication: ANTIDEPRESSANT THERAPY
     Dosage: 150 MG, QD
     Route: 048
     Dates: start: 20140213
  6. BENTYL [Concomitant]
     Active Substance: DICYCLOMINE HYDROCHLORIDE
     Indication: GASTROINTESTINAL DISORDER
     Dosage: 20 MG, QID
     Route: 048
     Dates: start: 20160414

REACTIONS (6)
  - Death [Fatal]
  - Acute kidney injury [Unknown]
  - Urinary tract stoma complication [Unknown]
  - Urinary tract infection [Unknown]
  - Dehydration [Unknown]
  - Hyponatraemia [Unknown]

NARRATIVE: CASE EVENT DATE: 20160417
